FAERS Safety Report 4851208-2 (Version None)
Quarter: 2005Q4

REPORT INFORMATION
  Report Type: 
  Country: None (occurrence: None)
  Receive Date: 20051208
  Receipt Date: 20051130
  Transmission Date: 20060501
  Serious: Yes (Hospitalization, Other)
  Sender: FDA-Public Use
  Company Number: 2005162072

PATIENT
  Sex: Female
  Weight: 49.8957 kg

DRUGS (9)
  1. SURFAK (DOCUSATE CALCIUM) [Suspect]
     Indication: CONSTIPATION
     Dosage: 1 TAB NIGHTLY, ORAL
     Route: 048
     Dates: start: 19920101
  2. IMIPRAMINE [Suspect]
     Indication: DEPRESSION
     Dosage: 100MG/NIGHTLY; 50MG/MORNING
     Dates: start: 19920101
  3. THYROID TAB [Suspect]
     Indication: HYPOTHYROIDISM
     Dosage: 60 MG DAILY, ORAL
     Route: 048
     Dates: start: 19900101
  4. ALPRAZOLAM [Concomitant]
  5. CALCIUM CITRATE (CALCIUM CITRATE) [Concomitant]
  6. MYRTILLUS (MYRTILLUS) [Concomitant]
  7. MULTIVITAMINS (ASCORBIC ACID, ERGOCALCIFEROL, FOLIC ACID, NICOTINAMIDE [Concomitant]
  8. FISH OIL (FISH OIL) [Concomitant]
  9. ASCORBIC ACID [Concomitant]

REACTIONS (5)
  - BREAST CANCER [None]
  - INCORRECT DOSE ADMINISTERED [None]
  - LOSS OF CONSCIOUSNESS [None]
  - POST POLIO SYNDROME [None]
  - THYROID FUNCTION TEST ABNORMAL [None]
